FAERS Safety Report 21643485 (Version 1)
Quarter: 2022Q4

REPORT INFORMATION
  Report Type: Spontaneous
  Country: ES (occurrence: ES)
  Receive Date: 20221125
  Receipt Date: 20221125
  Transmission Date: 20230112
  Serious: Yes (Other)
  Sender: FDA-Public Use
  Company Number: ES-SUN PHARMACEUTICAL INDUSTRIES LTD-2022RR-365901

PATIENT
  Age: 15 Year
  Sex: Female

DRUGS (9)
  1. LEVETIRACETAM [Suspect]
     Active Substance: LEVETIRACETAM
     Indication: Myoclonus
     Dosage: 1500 MILLIGRAM, BID
     Route: 065
  2. LEVETIRACETAM [Suspect]
     Active Substance: LEVETIRACETAM
     Indication: Lafora^s myoclonic epilepsy
  3. VALPROIC ACID [Suspect]
     Active Substance: VALPROIC ACID
     Indication: Lafora^s myoclonic epilepsy
     Dosage: 1700 MILLIGRAM, DAILY
     Route: 065
  4. CLOBAZAM [Suspect]
     Active Substance: CLOBAZAM
     Indication: Lafora^s myoclonic epilepsy
     Dosage: 5 MILLIGRAM, BID
     Route: 065
  5. CLONAZEPAM [Suspect]
     Active Substance: CLONAZEPAM
     Indication: Lafora^s myoclonic epilepsy
     Dosage: 1 MILLIGRAM, TID
     Route: 065
  6. LACOSAMIDE [Suspect]
     Active Substance: LACOSAMIDE
     Indication: Lafora^s myoclonic epilepsy
     Dosage: 300 MILLIGRAM, DAILY
     Route: 065
  7. ZONISAMIDE [Suspect]
     Active Substance: ZONISAMIDE
     Indication: Lafora^s myoclonic epilepsy
     Dosage: 100 MILLIGRAM, BID
  8. ZONISAMIDE [Suspect]
     Active Substance: ZONISAMIDE
     Dosage: 350 MILLIGRAM, DAILY
  9. ZONISAMIDE [Suspect]
     Active Substance: ZONISAMIDE
     Dosage: 500 MILLIGRAM, DAILY
     Route: 065

REACTIONS (4)
  - Drug ineffective [Unknown]
  - Disease progression [Unknown]
  - Weight decreased [Unknown]
  - Treatment noncompliance [Unknown]
